FAERS Safety Report 23812687 (Version 3)
Quarter: 2024Q3

REPORT INFORMATION
  Report Type: Spontaneous
  Country: US (occurrence: US)
  Receive Date: 20240503
  Receipt Date: 20240712
  Transmission Date: 20241017
  Serious: No
  Sender: LUPIN
  Company Number: US-LUPIN PHARMACEUTICALS INC.-2024-03516

PATIENT

DRUGS (1)
  1. ALBUTEROL SULFATE [Suspect]
     Active Substance: ALBUTEROL SULFATE
     Indication: Asthma
     Dosage: UNK, PRN ( 2 PUFFS EVERY 4 HOURS AS NEEDED)
     Dates: start: 202403

REACTIONS (4)
  - Incorrect dose administered by device [Unknown]
  - Therapeutic product ineffective [Unknown]
  - Device leakage [Unknown]
  - Wrong technique in product usage process [Unknown]
